FAERS Safety Report 9271198 (Version 2)
Quarter: 2013Q2

REPORT INFORMATION
  Report Type: Report from Study
  Country: US (occurrence: US)
  Receive Date: 20130506
  Receipt Date: 20130506
  Transmission Date: 20140414
  Serious: Yes (Hospitalization)
  Sender: FDA-Public Use
  Company Number: PHHO2009US11439

PATIENT
  Age: 80 Year
  Sex: Female
  Weight: 51.4 kg

DRUGS (12)
  1. PLACEBO [Suspect]
     Indication: PANCREATIC NEUROENDOCRINE TUMOUR
     Dosage: UNK
     Route: 048
     Dates: start: 20090424, end: 20090712
  2. RAD001C [Suspect]
     Indication: PANCREATIC NEUROENDOCRINE TUMOUR
     Dosage: 10 MG/DAY
     Route: 048
     Dates: start: 20090713, end: 20090914
  3. COREG CR [Concomitant]
     Indication: ARRHYTHMIA
     Dosage: 40MG DAILY
     Dates: start: 20090330
  4. DIGITEK [Concomitant]
     Indication: ARRHYTHMIA
     Dosage: 0.125MG DAILY
  5. NEXIUM [Concomitant]
     Indication: GASTROOESOPHAGEAL REFLUX DISEASE
     Dosage: 40MG DAILY
  6. VITAMIN D [Concomitant]
     Indication: HYPOVITAMINOSIS
     Dosage: 50000 U WEEKLY
  7. ONDANSETRON [Concomitant]
     Indication: NAUSEA
     Dosage: 8MG AS REQUIRED
  8. IMODIUM [Concomitant]
     Indication: DIARRHOEA
     Dosage: 2MG AS REQUIRED
  9. OLOPATADINE HYDROCHLORIDE [Concomitant]
     Indication: HYPERSENSITIVITY
     Dosage: 1 DROP EACH EYE DAILY AS REQUIRED
     Route: 047
     Dates: start: 20090615, end: 20090707
  10. CENTRUM SILVER [Concomitant]
     Indication: SUPPLEMENTATION THERAPY
     Dosage: 1 PILL DAILY
     Dates: start: 20090330
  11. ASPIRIN [Concomitant]
     Indication: ANTICOAGULANT THERAPY
     Dosage: 81MG DAILY
     Dates: start: 20090330
  12. LASIX [Concomitant]

REACTIONS (8)
  - Anaemia [Unknown]
  - Chest discomfort [Unknown]
  - Sensation of heaviness [Unknown]
  - Fatigue [Unknown]
  - Palpitations [Unknown]
  - Blood pressure increased [Unknown]
  - Cardiac failure congestive [Unknown]
  - Feeling abnormal [Unknown]
